FAERS Safety Report 13020006 (Version 2)
Quarter: 2017Q1

REPORT INFORMATION
  Report Type: Spontaneous
  Country: FR (occurrence: FR)
  Receive Date: 20161212
  Receipt Date: 20170104
  Transmission Date: 20170428
  Serious: Yes (Death, Hospitalization)
  Sender: FDA-Public Use
  Company Number: FR-009507513-1612FRA004822

PATIENT
  Age: 79 Year
  Sex: Male

DRUGS (8)
  1. AVASTIN [Suspect]
     Active Substance: BEVACIZUMAB
     Dosage: UNK
     Route: 042
  2. ZOLPIDEM [Concomitant]
     Active Substance: ZOLPIDEM\ZOLPIDEM TARTRATE
     Dosage: 10 MG, EVERY EVENING FOR MORE THAN ONE YEAR
  3. ESIDREX [Suspect]
     Active Substance: HYDROCHLOROTHIAZIDE
     Dosage: 1/2 DF IN THE MORNING AND 1 DF IN THE EVENING
     Dates: start: 20161010, end: 20161130
  4. ESOMEPRAZOLE [Concomitant]
     Active Substance: ESOMEPRAZOLE
     Dosage: 1 DF, QPM
     Route: 048
     Dates: start: 20161125
  5. INNOHEP [Concomitant]
     Active Substance: TINZAPARIN SODIUM
     Indication: PULMONARY EMBOLISM
     Dosage: UNK
     Dates: start: 2014
  6. COZAAR [Suspect]
     Active Substance: LOSARTAN POTASSIUM
     Dosage: 25 MG, DAILY (1/2 DF IN THE MORNING)
     Route: 048
     Dates: start: 201609, end: 20161130
  7. ALPRAZOLAM. [Concomitant]
     Active Substance: ALPRAZOLAM
     Dosage: 1/2 DF THE MORNING AND 1 DF THE EVENING FOR MORE THAN ONE YEAR
  8. SPASFON [Concomitant]
     Active Substance: PHLOROGLUCINOL
     Dosage: 3 DF, UNK
     Route: 048
     Dates: start: 20161122

REACTIONS (2)
  - Hepatitis [Fatal]
  - Hepatitis cholestatic [Fatal]

NARRATIVE: CASE EVENT DATE: 20161129
